FAERS Safety Report 18432092 (Version 1)
Quarter: 2020Q4

REPORT INFORMATION
  Report Type: Spontaneous
  Country: US (occurrence: US)
  Receive Date: 20201027
  Receipt Date: 20201027
  Transmission Date: 20210114
  Serious: Yes (Other)
  Sender: FDA-Public Use
  Company Number: None

PATIENT
  Age: 19 Year
  Sex: Male
  Weight: 74.25 kg

DRUGS (22)
  1. HYPERTONIC SALINE [Concomitant]
     Active Substance: SODIUM CHLORIDE
  2. PULMOZYME [Concomitant]
     Active Substance: DORNASE ALFA
  3. LITHIUM OROTATE [Concomitant]
     Active Substance: LITHIUM OROTATE
  4. TRIKAFTA [Suspect]
     Active Substance: ELEXACAFTOR\IVACAFTOR\TEZACAFTOR
     Indication: CYSTIC FIBROSIS
     Dates: start: 20191129, end: 20200407
  5. XOPENEX [Concomitant]
     Active Substance: LEVALBUTEROL HYDROCHLORIDE
  6. ELECTROLYTE SUPPLEMENT [Concomitant]
  7. NEBULIZER COMPRESSOR AND CUPS/MASK [Concomitant]
  8. SYMDEKO [Suspect]
     Active Substance: IVACAFTOR\TEZACAFTOR
  9. NALTREXONE [Concomitant]
     Active Substance: NALTREXONE
  10. TOBRAMYCIN. [Concomitant]
     Active Substance: TOBRAMYCIN
  11. FOLATE [Concomitant]
     Active Substance: FOLATE SODIUM
  12. PANCREAZE [Concomitant]
     Active Substance: PANCRELIPASE AMYLASE\PANCRELIPASE LIPASE\PANCRELIPASE PROTEASE
  13. HILL-ROMM MONARCH VEST [Concomitant]
  14. FISH OIL [Concomitant]
     Active Substance: FISH OIL
  15. ZONISAMIDE. [Concomitant]
     Active Substance: ZONISAMIDE
  16. EPIDIOLEX [Concomitant]
     Active Substance: CANNABIDIOL
  17. VITAMIN D [Concomitant]
     Active Substance: VITAMIN D NOS
  18. N-ACETYL CYSTEINE [Concomitant]
     Active Substance: ACETYLCYSTEINE
  19. MELATONIN [Concomitant]
     Active Substance: MELATONIN
  20. MULTIVITAMIN [Concomitant]
     Active Substance: VITAMINS
  21. VITAMIN K [Concomitant]
     Active Substance: PHYTONADIONE
  22. HAWTHORN BERRY [Concomitant]

REACTIONS (7)
  - Hyperacusis [None]
  - Mood altered [None]
  - Anger [None]
  - Irritability [None]
  - Aggression [None]
  - Seizure [None]
  - Depressed mood [None]

NARRATIVE: CASE EVENT DATE: 20200104
